FAERS Safety Report 7437770-4 (Version None)
Quarter: 2011Q2

REPORT INFORMATION
  Report Type: 
  Country: None (occurrence: None)
  Receive Date: 20110426
  Receipt Date: 20110420
  Transmission Date: 20111010
  Serious: Yes (Death, Hospitalization, Other)
  Sender: FDA-Public Use
  Company Number: JP-CEPHALON-2011001213

PATIENT
  Age: 59 Year
  Sex: Male

DRUGS (5)
  1. BENDAMUSTINE HCL [Suspect]
     Indication: MANTLE CELL LYMPHOMA
     Route: 042
     Dates: start: 20110118, end: 20110119
  2. BENDAMUSTINE HCL [Suspect]
     Route: 042
     Dates: start: 20110413, end: 20110414
  3. RITUXIMAB [Concomitant]
     Indication: MANTLE CELL LYMPHOMA
     Dates: start: 20110209
  4. BENDAMUSTINE HCL [Suspect]
     Route: 042
     Dates: start: 20110209, end: 20110210
  5. BENDAMUSTINE HCL [Suspect]
     Route: 042
     Dates: start: 20110302, end: 20110303

REACTIONS (4)
  - BONE MARROW FAILURE [None]
  - NEOPLASM MALIGNANT [None]
  - MANTLE CELL LYMPHOMA [None]
  - MONOPLEGIA [None]
